FAERS Safety Report 5160250-6 (Version None)
Quarter: 2006Q4

REPORT INFORMATION
  Report Type: 
  Country: None (occurrence: None)
  Receive Date: 20061129
  Receipt Date: 20061124
  Transmission Date: 20070319
  Serious: Yes (Hospitalization)
  Sender: FDA-Public Use
  Company Number: US-GLAXOSMITHKLINE-A0628542A

PATIENT
  Age: 26 Year
  Sex: Female

DRUGS (4)
  1. LAMICTAL [Suspect]
     Indication: BIPOLAR DISORDER
     Dosage: 100MG TWICE PER DAY
     Route: 048
     Dates: start: 20050101
  2. ABILIFY [Suspect]
     Indication: DRUG USE FOR UNKNOWN INDICATION
  3. GEODON [Suspect]
     Indication: DRUG USE FOR UNKNOWN INDICATION
  4. UNSPECIFIED MEDICATION [Concomitant]

REACTIONS (6)
  - ADVERSE EVENT [None]
  - CHOLESTASIS [None]
  - DRUG INTERACTION [None]
  - HEPATOCELLULAR DAMAGE [None]
  - PRURITUS [None]
  - RASH MACULO-PAPULAR [None]
